FAERS Safety Report 8177884-7 (Version None)
Quarter: 2012Q1

REPORT INFORMATION
  Report Type: 
  Country: None (occurrence: None)
  Receive Date: 20120301
  Receipt Date: 20120221
  Transmission Date: 20120608
  Serious: Yes (Congenital Anomaly, Other)
  Sender: FDA-Public Use
  Company Number: DE-TEVA-324084GER

PATIENT
  Age: 0 Year
  Sex: Male

DRUGS (3)
  1. FOLIC ACID [Concomitant]
     Route: 064
  2. OXCARBAZEPINE [Suspect]
     Dosage: 1200 [MG/D (2X600) ]
     Route: 064
  3. ARIPIPRAZOLE [Suspect]
     Dosage: 10 [MG/D ]
     Route: 064

REACTIONS (6)
  - PACHYGYRIA [None]
  - PULMONARY ARTERY STENOSIS CONGENITAL [None]
  - SEPTUM PELLUCIDUM AGENESIS [None]
  - PREMATURE BABY [None]
  - URINARY TRACT DISORDER [None]
  - ATRIAL SEPTAL DEFECT [None]
